FAERS Safety Report 9616417 (Version 1)
Quarter: 2013Q4

REPORT INFORMATION
  Report Type: Report from Study
  Country: BR (occurrence: BR)
  Receive Date: 20131011
  Receipt Date: 20131011
  Transmission Date: 20140711
  Serious: Yes (Hospitalization)
  Sender: FDA-Public Use
  Company Number: BR-ROCHE-1287566

PATIENT
  Sex: Female
  Weight: 47 kg

DRUGS (6)
  1. MABTHERA [Suspect]
     Indication: RHEUMATOID ARTHRITIS
     Dosage: LATEST DOSE : 14/APR/2013.
     Route: 042
     Dates: start: 20120901
  2. VITAMIN C [Concomitant]
     Route: 065
  3. CEFALEXIN [Concomitant]
  4. IBUPROFEN [Concomitant]
  5. DIPYRONE [Concomitant]
  6. OMEPRAZOLE [Concomitant]

REACTIONS (1)
  - Back injury [Recovering/Resolving]
